FAERS Safety Report 6516582-X (Version None)
Quarter: 2009Q4

REPORT INFORMATION
  Report Type: 
  Country: None (occurrence: None)
  Receive Date: 20091223
  Receipt Date: 20091217
  Transmission Date: 20100525
  Serious: Yes (Other)
  Sender: FDA-Public Use
  Company Number: US-ELI_LILLY_AND_COMPANY-US200911003296

PATIENT
  Sex: Female

DRUGS (2)
  1. HUMATROPE [Suspect]
     Dosage: 0.05 MG, DAILY (1/D)
     Route: 058
     Dates: start: 19960101, end: 20020101
  2. HUMATROPE [Suspect]
     Dosage: 0.75 MG, DAILY (1/D)
     Route: 058
     Dates: start: 20020101

REACTIONS (2)
  - RENAL FUSION ANOMALY [None]
  - VESICOURETERIC REFLUX [None]
